FAERS Safety Report 6189598-3 (Version None)
Quarter: 2009Q2

REPORT INFORMATION
  Report Type: 
  Country: None (occurrence: None)
  Receive Date: 20090512
  Receipt Date: 20090512
  Transmission Date: 20091009
  Serious: Yes (Other)
  Sender: FDA-Public Use
  Company Number: None

PATIENT
  Age: 20 Year
  Sex: Female
  Weight: 59.4212 kg

DRUGS (1)
  1. MEFLOQUINE HCL [Suspect]
     Indication: MALARIA PROPHYLAXIS
     Dosage: 250 MG WEEKY PO
     Route: 048
     Dates: start: 20090315, end: 20090322

REACTIONS (9)
  - AGITATION [None]
  - ANXIETY [None]
  - CRYING [None]
  - DYSPNOEA [None]
  - HYPERVIGILANCE [None]
  - INSOMNIA [None]
  - NIGHTMARE [None]
  - PARANOIA [None]
  - UNEVALUABLE EVENT [None]
